FAERS Safety Report 6333661-0 (Version None)
Quarter: 2009Q3

REPORT INFORMATION
  Report Type: 
  Country: None (occurrence: None)
  Receive Date: 20090829
  Receipt Date: 20090519
  Transmission Date: 20100115
  Serious: No
  Sender: FDA-Public Use
  Company Number: US-ABBOTT-09P-163-0574641-00

PATIENT
  Sex: Male
  Weight: 104.42 kg

DRUGS (1)
  1. SIMCOR [Suspect]
     Indication: BLOOD CHOLESTEROL INCREASED
     Route: 048
     Dates: start: 20080101, end: 20090401

REACTIONS (3)
  - BLOOD TRIGLYCERIDES INCREASED [None]
  - HOT FLUSH [None]
  - LOW DENSITY LIPOPROTEIN INCREASED [None]
